FAERS Safety Report 5413443-4 (Version None)
Quarter: 2007Q3

REPORT INFORMATION
  Report Type: 
  Country: None (occurrence: None)
  Receive Date: 20070810
  Receipt Date: 20070810
  Transmission Date: 20080115
  Serious: Yes (Hospitalization, Other)
  Sender: FDA-Public Use
  Company Number: None

PATIENT
  Age: 51 Year
  Sex: Female
  Weight: 63.5036 kg

DRUGS (2)
  1. CIPRO [Suspect]
     Indication: CYSTITIS
     Dosage: 500 MG 1 X DAY PO
     Route: 048
     Dates: start: 20050501, end: 20050601
  2. CIPRO [Suspect]
     Indication: CYSTITIS
     Dosage: 500 MG 1 X DAY PO
     Route: 048
     Dates: start: 20070401, end: 20070501

REACTIONS (1)
  - TENDONITIS [None]
